FAERS Safety Report 21790174 (Version 1)
Quarter: 2022Q4

REPORT INFORMATION
  Report Type: Spontaneous
  Country: US (occurrence: US)
  Receive Date: 20221228
  Receipt Date: 20221228
  Transmission Date: 20230113
  Serious: No
  Sender: FDA-Public Use
  Company Number: US-PFIZER INC-PV202200131283

PATIENT
  Age: 48 Year
  Sex: Male

DRUGS (7)
  1. PEGVISOMANT [Suspect]
     Active Substance: PEGVISOMANT
     Dosage: 20 MG, DAILY
  2. PEGVISOMANT [Suspect]
     Active Substance: PEGVISOMANT
     Dosage: 25 MG, DAILY
     Route: 058
     Dates: start: 202102, end: 202210
  3. SOMAVERT [Suspect]
     Active Substance: PEGVISOMANT
     Dosage: 30 MG, DAILY
     Dates: start: 202110
  4. SOMAVERT [Suspect]
     Active Substance: PEGVISOMANT
     Dosage: UNK, DAILY
     Dates: start: 202201
  5. SOMAVERT [Suspect]
     Active Substance: PEGVISOMANT
     Dosage: 35 MG, DAILY
  6. SOMAVERT [Suspect]
     Active Substance: PEGVISOMANT
     Dosage: UNK
     Dates: end: 202202
  7. SANDOSTATIN [Suspect]
     Active Substance: OCTREOTIDE ACETATE
     Dosage: 10 MG, MONTHLY
     Dates: end: 202110

REACTIONS (4)
  - Insulin-like growth factor increased [Not Recovered/Not Resolved]
  - Blood testosterone abnormal [Unknown]
  - Off label use [Unknown]
  - Product use issue [Unknown]
